APPROVED DRUG PRODUCT: ROSUVASTATIN CALCIUM
Active Ingredient: ROSUVASTATIN CALCIUM
Strength: EQ 5MG BASE
Dosage Form/Route: TABLET;ORAL
Application: A208850 | Product #001
Applicant: AMNEAL PHARMACEUTICALS CO GMBH
Approved: Oct 16, 2018 | RLD: No | RS: No | Type: DISCN